FAERS Safety Report 16292463 (Version 3)
Quarter: 2022Q2

REPORT INFORMATION
  Report Type: Spontaneous
  Country: US (occurrence: None)
  Receive Date: 20190509
  Receipt Date: 20220427
  Transmission Date: 20220721
  Serious: Yes (Hospitalization, Disabling, Other)
  Sender: FDA-Public Use
  Company Number: 2019SE62773

PATIENT
  Age: 22618 Day
  Sex: Female
  Weight: 76.2 kg

DRUGS (32)
  1. PRILOSEC [Suspect]
     Active Substance: OMEPRAZOLE MAGNESIUM
     Indication: Gastrooesophageal reflux disease
     Route: 048
     Dates: start: 199001, end: 201412
  2. PRILOSEC [Suspect]
     Active Substance: OMEPRAZOLE MAGNESIUM
     Indication: Gastrooesophageal reflux disease
     Route: 048
     Dates: start: 1990, end: 2014
  3. PRILOSEC [Suspect]
     Active Substance: OMEPRAZOLE MAGNESIUM
     Indication: Gastrooesophageal reflux disease
     Dosage: GENERIC
     Route: 065
     Dates: start: 200211, end: 200212
  4. PRILOSEC OTC [Suspect]
     Active Substance: OMEPRAZOLE MAGNESIUM
     Indication: Gastrooesophageal reflux disease
     Route: 048
     Dates: start: 200306, end: 200307
  5. PANTOPRAZOLE [Suspect]
     Active Substance: PANTOPRAZOLE
     Indication: Gastrooesophageal reflux disease
     Route: 065
     Dates: start: 201210
  6. METOPROLOL [Concomitant]
     Active Substance: METOPROLOL
  7. OXYCODONE [Concomitant]
     Active Substance: OXYCODONE
     Indication: Arthritis
  8. DOXEPIN [Concomitant]
     Active Substance: DOXEPIN
     Indication: Fatigue
  9. KEFLEX [Concomitant]
     Active Substance: CEPHALEXIN
     Indication: Urinary tract infection
  10. KEPPRA [Concomitant]
     Active Substance: LEVETIRACETAM
     Indication: Seizure
  11. LISINOPRIL [Concomitant]
     Active Substance: LISINOPRIL
  12. FLUTICASONE [Concomitant]
     Active Substance: FLUTICASONE
  13. TOPIRAMATE [Concomitant]
     Active Substance: TOPIRAMATE
  14. METOPROLOL [Concomitant]
     Active Substance: METOPROLOL
  15. GABAPENTIN [Concomitant]
     Active Substance: GABAPENTIN
  16. WARFARIN [Concomitant]
     Active Substance: WARFARIN
  17. AZITHROMYCIN [Concomitant]
     Active Substance: AZITHROMYCIN
  18. RENVELA [Concomitant]
     Active Substance: SEVELAMER CARBONATE
  19. TAMSULOSIN [Concomitant]
     Active Substance: TAMSULOSIN
  20. PROCHLORPERAZINE [Concomitant]
     Active Substance: PROCHLORPERAZINE
  21. FUROSEMIDE [Concomitant]
     Active Substance: FUROSEMIDE
  22. LORAZEPAM [Concomitant]
     Active Substance: LORAZEPAM
  23. PRAVASTATIN [Concomitant]
     Active Substance: PRAVASTATIN
     Route: 048
  24. OXYCONTIN [Concomitant]
     Active Substance: OXYCODONE HYDROCHLORIDE
  25. DOXEPIN [Concomitant]
     Active Substance: DOXEPIN
  26. PREDNISONE [Concomitant]
     Active Substance: PREDNISONE
  27. VENTOLIN [Concomitant]
     Active Substance: ALBUTEROL SULFATE
  28. COUMADIN [Concomitant]
     Active Substance: WARFARIN SODIUM
  29. FLOMAX [Concomitant]
     Active Substance: TAMSULOSIN HYDROCHLORIDE
  30. TOPAMAX [Concomitant]
     Active Substance: TOPIRAMATE
  31. CHOLESTYRAMINE [Concomitant]
     Active Substance: CHOLESTYRAMINE
  32. ADVAIR DISKUS [Concomitant]
     Active Substance: FLUTICASONE PROPIONATE\SALMETEROL XINAFOATE

REACTIONS (5)
  - Chronic kidney disease [Not Recovered/Not Resolved]
  - Acute kidney injury [Unknown]
  - Renal failure [Not Recovered/Not Resolved]
  - Gastrooesophageal reflux disease [Not Recovered/Not Resolved]
  - End stage renal disease [Unknown]

NARRATIVE: CASE EVENT DATE: 20121014
